FAERS Safety Report 10183652 (Version 2)
Quarter: 2014Q2

REPORT INFORMATION
  Report Type: Report from Study
  Country: DE (occurrence: IL)
  Receive Date: 20140520
  Receipt Date: 20140520
  Transmission Date: 20141212
  Serious: Yes (Death, Other)
  Sender: FDA-Public Use
  Company Number: DE-ACTELION-A-US2014-95138

PATIENT
  Age: 57 Year
  Sex: Female

DRUGS (16)
  1. VENTAVIS [Suspect]
     Indication: PULMONARY HYPERTENSION
     Dosage: UNK
     Route: 055
     Dates: start: 20140212
  2. VENTAVIS [Suspect]
     Dosage: SLOW TITRATION UP TO 3 INHALATIONS A DAY
     Route: 055
     Dates: start: 20140226
  3. FUSID [Concomitant]
  4. ALDACTONE [Concomitant]
  5. OMEPRADEX [Concomitant]
  6. ELTROXIN [Concomitant]
  7. MODAL [Concomitant]
  8. NOVONORM [Concomitant]
  9. INSULIN [Concomitant]
  10. LANTUS [Concomitant]
  11. LUSTRAL [Concomitant]
  12. AEROVENT [Concomitant]
  13. VENTOLIN [Concomitant]
  14. FLIXOTIDE [Concomitant]
  15. ROXAR [Concomitant]
  16. OXYGEN [Concomitant]

REACTIONS (8)
  - Multi-organ failure [Fatal]
  - Oxygen saturation decreased [Recovered/Resolved]
  - Oxygen saturation decreased [Recovered/Resolved]
  - Dyspnoea [Unknown]
  - Erythema [Unknown]
  - Heart rate increased [Recovered/Resolved]
  - Influenza [Recovered/Resolved]
  - Pyrexia [Unknown]
